FAERS Safety Report 25024416 (Version 1)
Quarter: 2025Q1

REPORT INFORMATION
  Report Type: Spontaneous
  Country: US (occurrence: None)
  Receive Date: 20250227
  Receipt Date: 20250227
  Transmission Date: 20250409
  Serious: Yes (Other)
  Sender: FDA-CTU
  Company Number: None

PATIENT
  Age: 67 Year
  Sex: Female
  Weight: 75.3 kg

DRUGS (3)
  1. DIETARY SUPPLEMENT [Suspect]
     Active Substance: DIETARY SUPPLEMENT
     Indication: Arthralgia
     Dosage: BID ORAL?
     Route: 048
     Dates: start: 20220101, end: 20250121
  2. DEXAMETHASONE [Suspect]
     Active Substance: DEXAMETHASONE
  3. DICLOFENAC [Suspect]
     Active Substance: DICLOFENAC

REACTIONS (5)
  - Product formulation issue [None]
  - Product communication issue [None]
  - Diabetes mellitus [None]
  - Renal impairment [None]
  - Iron deficiency anaemia [None]

NARRATIVE: CASE EVENT DATE: 20250121
